FAERS Safety Report 6768699-2 (Version None)
Quarter: 2010Q2

REPORT INFORMATION
  Report Type: 
  Country: None (occurrence: None)
  Receive Date: 20100614
  Receipt Date: 20100604
  Transmission Date: 20101027
  Serious: Yes (Hospitalization)
  Sender: FDA-Public Use
  Company Number: JP-ELI_LILLY_AND_COMPANY-JP201005002333

PATIENT
  Sex: Female
  Weight: 46 kg

DRUGS (9)
  1. GEMZAR [Suspect]
     Indication: BILE DUCT CANCER STAGE IV
     Dosage: 1200 MG, OTHER
     Route: 042
     Dates: start: 20100319, end: 20100430
  2. LOXONIN [Concomitant]
     Indication: ANALGESIC THERAPY
     Dosage: 60 MG, 3/D
     Route: 048
     Dates: start: 20100301
  3. MUCOSTA [Concomitant]
     Dosage: 100 MG, 3/D
     Route: 048
     Dates: start: 20100301
  4. MAGLAX [Concomitant]
     Indication: CONSTIPATION
     Dosage: 1 D/F, 3/D
     Route: 048
     Dates: start: 20100301
  5. NOVAMIN [Concomitant]
     Indication: PROPHYLAXIS OF NAUSEA AND VOMITING
     Dosage: 5 MG, 3/D
     Route: 048
     Dates: start: 20100301
  6. OMEPRAZOLE [Concomitant]
     Dosage: 20 MG, DAILY (1/D)
     Route: 048
     Dates: start: 20100301
  7. MYSLEE [Concomitant]
     Indication: INSOMNIA
     Dosage: 5 MG, DAILY (1/D)
     Route: 048
     Dates: start: 20100301
  8. OXYCONTIN [Concomitant]
     Indication: ANALGESIC THERAPY
     Dosage: 5 MG, 2/D
     Route: 048
     Dates: start: 20100301
  9. OXYCODONE HCL [Concomitant]
     Indication: ANALGESIC THERAPY
     Dosage: UNK, AS NEEDED
     Route: 048
     Dates: start: 20100301

REACTIONS (1)
  - CEREBRAL INFARCTION [None]
